FAERS Safety Report 6003110-0 (Version None)
Quarter: 2008Q4

REPORT INFORMATION
  Report Type: 
  Country: None (occurrence: None)
  Receive Date: 20081216
  Receipt Date: 20081203
  Transmission Date: 20090506
  Serious: Yes (Other)
  Sender: FDA-Public Use
  Company Number: NL-TEVA-181949ISR

PATIENT
  Sex: Female
  Weight: 81 kg

DRUGS (7)
  1. METFORMIN HCL [Suspect]
     Indication: DIABETES MELLITUS
  2. METFORMIN HCL [Suspect]
  3. INSULIN GLARGINE [Concomitant]
     Indication: DIABETES MELLITUS
     Route: 058
     Dates: start: 20070418
  4. ENALAPRIL MALEATE [Concomitant]
  5. ZOLPIDEM TARTRATE [Concomitant]
  6. SIMVASTATIN [Concomitant]
  7. PANTOPRAZOLE SODIUM [Concomitant]

REACTIONS (2)
  - OPTIC NEURITIS [None]
  - VITAMIN B12 DEFICIENCY [None]
